FAERS Safety Report 7202985-7 (Version None)
Quarter: 2010Q4

REPORT INFORMATION
  Report Type: 
  Country: None (occurrence: None)
  Receive Date: 20101229
  Receipt Date: 20101221
  Transmission Date: 20110411
  Serious: Yes (Other)
  Sender: FDA-Public Use
  Company Number: US-PFIZER INC-2010178189

PATIENT
  Sex: Female
  Weight: 68 kg

DRUGS (4)
  1. XALATAN [Suspect]
     Dosage: ONE DROP, 1X/DAY, IN EACH EYE
     Route: 047
  2. LIPITOR [Suspect]
     Dosage: UNK
  3. MEVACOR [Suspect]
     Dosage: UNK
  4. PRAVACHOL [Suspect]
     Dosage: UNK

REACTIONS (8)
  - BACK PAIN [None]
  - CATARACT [None]
  - FATIGUE [None]
  - GLAUCOMA [None]
  - MUSCULAR WEAKNESS [None]
  - MYALGIA [None]
  - THINKING ABNORMAL [None]
  - VISUAL ACUITY REDUCED [None]
